FAERS Safety Report 7962446-4 (Version None)
Quarter: 2011Q4

REPORT INFORMATION
  Report Type: 
  Country: None (occurrence: None)
  Receive Date: 20111207
  Receipt Date: 20111021
  Transmission Date: 20120403
  Serious: Yes (Hospitalization)
  Sender: FDA-Public Use
  Company Number: SE-GLAXOSMITHKLINE-B0759069A

PATIENT
  Sex: Female
  Weight: 57.6 kg

DRUGS (3)
  1. ALEMTUZUMAB [Suspect]
     Indication: CHRONIC LYMPHOCYTIC LEUKAEMIA
     Dosage: 30MG PER DAY
     Route: 058
  2. KETOPROFEN [Concomitant]
     Indication: PYREXIA
     Dosage: 200MG PER DAY
     Route: 048
     Dates: start: 20110120
  3. OFATUMUMAB [Suspect]
     Indication: CHRONIC LYMPHOCYTIC LEUKAEMIA
     Route: 065
     Dates: start: 20111003

REACTIONS (1)
  - CYTOMEGALOVIRUS INFECTION [None]
